FAERS Safety Report 8637750 (Version 2)
Quarter: 2012Q4

REPORT INFORMATION
  Report Type: 
  Country: US (occurrence: US)
  Receive Date: 20120627
  Receipt Date: 20121017
  Transmission Date: 20130627
  Serious: Yes (Hospitalization)
  Sender: FDA-Public Use
  Company Number: US-BAYER-2012-062622

PATIENT
  Age: 32 Year
  Sex: Female
  Weight: 68.93 kg

DRUGS (6)
  1. YASMIN [Suspect]
     Indication: CONTRACEPTION
     Dosage: UNK
     Dates: start: 20030809, end: 200405
  2. YASMIN [Suspect]
     Indication: CONTRACEPTION
     Dosage: UNK
     Dates: start: 20041008, end: 200504
  3. YASMIN [Suspect]
     Indication: CONTRACEPTION
     Dosage: UNK
     Dates: start: 20060425, end: 200705
  4. YASMIN [Suspect]
     Indication: CONTRACEPTION
     Dosage: UNK
     Dates: start: 20070703, end: 200801
  5. YAZ [Suspect]
     Indication: CONTRACEPTION
     Dosage: UNK
     Dates: start: 20080111, end: 200906
  6. PROTONIX [Concomitant]
     Indication: GASTRITIS
     Dosage: 40 mg,daily

REACTIONS (4)
  - Cholecystitis chronic [None]
  - Injury [None]
  - Abdominal pain upper [None]
  - Pain [None]
